FAERS Safety Report 18591804 (Version 1)
Quarter: 2020Q4

REPORT INFORMATION
  Report Type: Spontaneous
  Country: US (occurrence: US)
  Receive Date: 20201208
  Receipt Date: 20201208
  Transmission Date: 20210114
  Serious: No
  Sender: FDA-Public Use
  Company Number: US-009507513-2012USA001926

PATIENT
  Age: 25 Year
  Sex: Female
  Weight: 54.88 kg

DRUGS (1)
  1. NEXPLANON [Suspect]
     Active Substance: ETONOGESTREL
     Dosage: 1 ROD IN LEFT ARM, EVERY 4 YEARS
     Route: 059
     Dates: start: 2016

REACTIONS (4)
  - Incorrect product administration duration [Unknown]
  - Device issue [Not Recovered/Not Resolved]
  - Implant site fibrosis [Unknown]
  - Complication of device removal [Not Recovered/Not Resolved]

NARRATIVE: CASE EVENT DATE: 2019
